FAERS Safety Report 6888613-9 (Version None)
Quarter: 2010Q3

REPORT INFORMATION
  Report Type: 
  Country: None (occurrence: None)
  Receive Date: 20100730
  Receipt Date: 20071003
  Transmission Date: 20110219
  Serious: No
  Sender: FDA-Public Use
  Company Number: US-PFIZER INC-2007083368

PATIENT
  Sex: Male
  Weight: 68.1 kg

DRUGS (2)
  1. LIPITOR [Suspect]
     Indication: BLOOD CHOLESTEROL ABNORMAL
     Dates: start: 20050101
  2. COAPROVEL [Concomitant]
     Indication: HYPERTENSION

REACTIONS (2)
  - DIARRHOEA [None]
  - FLATULENCE [None]
